FAERS Safety Report 5636878-3 (Version None)
Quarter: 2008Q1

REPORT INFORMATION
  Report Type: 
  Country: None (occurrence: None)
  Receive Date: 20080225
  Receipt Date: 20080219
  Transmission Date: 20080703
  Serious: Yes (Disabling, Other)
  Sender: FDA-Public Use
  Company Number: US-RANBAXY-2008US-13146

PATIENT

DRUGS (2)
  1. LISINOPRIL [Suspect]
     Indication: DRUG USE FOR UNKNOWN INDICATION
     Dosage: 20 MG, UNK
     Route: 065
     Dates: end: 20080201
  2. MAXZIDE [Suspect]
     Indication: DRUG USE FOR UNKNOWN INDICATION
     Dosage: UNK
     Route: 065

REACTIONS (3)
  - DIZZINESS [None]
  - MEMORY IMPAIRMENT [None]
  - PANIC ATTACK [None]
